FAERS Safety Report 9564188 (Version 1)
Quarter: 2013Q3

REPORT INFORMATION
  Report Type: Spontaneous
  Country: US (occurrence: US)
  Receive Date: 20130930
  Receipt Date: 20130930
  Transmission Date: 20140515
  Serious: No
  Sender: FDA-Public Use
  Company Number: US-009507513-1309USA013121

PATIENT
  Age: 22 Year
  Sex: Female

DRUGS (1)
  1. IMPLANON [Suspect]
     Dosage: UNK

REACTIONS (5)
  - Scar [Unknown]
  - Weight increased [Unknown]
  - Medical device complication [Unknown]
  - Device deployment issue [Unknown]
  - Incorrect drug administration duration [Unknown]
